FAERS Safety Report 16899350 (Version 5)
Quarter: 2020Q1

REPORT INFORMATION
  Report Type: Spontaneous
  Country: IN (occurrence: IN)
  Receive Date: 20191009
  Receipt Date: 20200130
  Transmission Date: 20200409
  Serious: Yes (Hospitalization, Other)
  Sender: FDA-Public Use
  Company Number: IN-PFIZER INC-2019138322

PATIENT
  Age: 63 Year
  Sex: Male

DRUGS (1)
  1. CRIZALK [Suspect]
     Active Substance: CRIZOTINIB
     Indication: LUNG NEOPLASM MALIGNANT
     Dosage: 250 MG, 2X/DAY
     Route: 048
     Dates: start: 20180406

REACTIONS (8)
  - Thrombosis [Unknown]
  - Leukocytosis [Recovered/Resolved]
  - Neoplasm progression [Unknown]
  - Peripheral swelling [Recovered/Resolved]
  - Pericardial effusion [Unknown]
  - Dyspnoea [Recovered/Resolved]
  - Electrolyte imbalance [Recovered/Resolved]
  - Pleural effusion [Unknown]

NARRATIVE: CASE EVENT DATE: 20180611
